FAERS Safety Report 7142278-X (Version None)
Quarter: 2010Q4

REPORT INFORMATION
  Report Type: 
  Country: None (occurrence: None)
  Receive Date: 20101207
  Receipt Date: 20101127
  Transmission Date: 20110411
  Serious: No
  Sender: FDA-Public Use
  Company Number: US-PFIZER INC-2010159177

PATIENT
  Sex: Male

DRUGS (2)
  1. PRISTIQ [Suspect]
     Dosage: 50 MG, 1X/DAY
  2. PRISTIQ [Suspect]
     Dosage: 100 MG, 1X/DAY

REACTIONS (3)
  - EYE DISORDER [None]
  - MOVEMENT DISORDER [None]
  - PARAESTHESIA [None]
